FAERS Safety Report 8598135-5 (Version None)
Quarter: 2012Q3

REPORT INFORMATION
  Report Type: 
  Country: None (occurrence: None)
  Receive Date: 20120816
  Receipt Date: 20120807
  Transmission Date: 20120928
  Serious: Yes (Life-Threatening, Hospitalization)
  Sender: FDA-Public Use
  Company Number: US-BAYER-2011-102110

PATIENT
  Age: 41 Year
  Sex: Female
  Weight: 55.78 kg

DRUGS (7)
  1. YAZ [Suspect]
     Indication: ORAL CONTRACEPTION
     Dosage: UNK UNK, QD
     Route: 048
     Dates: start: 20060718, end: 20100524
  2. ACTIFED [Concomitant]
     Dosage: AS NEEDED
     Route: 048
     Dates: start: 20100526
  3. SUDAFED 12 HOUR [Concomitant]
     Dosage: AS NEEDED
     Route: 048
     Dates: start: 20100526
  4. IBUPROFEN [Concomitant]
     Indication: MYALGIA
  5. ASCORBIC ACID [Concomitant]
     Dosage: DAILY
  6. IBUPROFEN [Concomitant]
     Indication: HEADACHE
     Dosage: INFREQUENTLY
  7. YAZ [Suspect]
     Dosage: UNK
     Dates: start: 20061001, end: 20100501

REACTIONS (9)
  - INJURY [None]
  - PAIN [None]
  - DYSPNOEA [None]
  - CARDIAC DISORDER [None]
  - PULMONARY EMBOLISM [None]
  - NAUSEA [None]
  - ANXIETY [None]
  - CHEST DISCOMFORT [None]
  - TACHYCARDIA [None]
